FAERS Safety Report 11152909 (Version 7)
Quarter: 2018Q4

REPORT INFORMATION
  Report Type: Report from Study
  Country: JP (occurrence: JP)
  Receive Date: 20150601
  Receipt Date: 20181213
  Transmission Date: 20190204
  Serious: Yes (Death, Hospitalization, Other)
  Sender: FDA-Public Use
  Company Number: JP-INCYTE CORPORATION-2015IN002301

PATIENT

DRUGS (5)
  1. JAKAVI [Suspect]
     Active Substance: RUXOLITINIB
     Dosage: 20 MG, BID
     Route: 048
     Dates: start: 20150221
  2. PREDNISOLONE. [Concomitant]
     Active Substance: PREDNISOLONE
     Indication: MYELOFIBROSIS
     Dosage: 10 MG, QD
     Route: 048
  3. RED BLOOD CELLS-LEUKOCYTES REDUCED [Concomitant]
     Active Substance: HUMAN RED BLOOD CELL
     Indication: MYELOFIBROSIS
     Dosage: 2 IU, QD
     Route: 042
     Dates: end: 20150508
  4. RED BLOOD CELLS-LEUKOCYTES REDUCED [Concomitant]
     Active Substance: HUMAN RED BLOOD CELL
     Indication: ANAEMIA
  5. JAKAVI [Suspect]
     Active Substance: RUXOLITINIB
     Indication: MYELOFIBROSIS
     Dosage: 15 MG, BID
     Route: 048
     Dates: start: 20150214, end: 20150220

REACTIONS (5)
  - Disseminated intravascular coagulation [Fatal]
  - Anaemia [Unknown]
  - Concomitant disease aggravated [Unknown]
  - Hyperuricaemia [Unknown]
  - Pneumonia [Fatal]

NARRATIVE: CASE EVENT DATE: 20150514
